FAERS Safety Report 9338585 (Version 4)
Quarter: 2020Q1

REPORT INFORMATION
  Report Type: Spontaneous
  Country: IT (occurrence: IT)
  Receive Date: 20130610
  Receipt Date: 20200105
  Transmission Date: 20200409
  Serious: Yes (Death, Life-Threatening, Other)
  Sender: FDA-Public Use
  Company Number: IT-AMGEN-ITASP2013040198

PATIENT

DRUGS (13)
  1. NEULASTA [Suspect]
     Active Substance: PEGFILGRASTIM
     Indication: METASTATIC GASTRIC CANCER
     Dosage: 6 MILLIGRAM, (ON DAY THREE)
     Route: 058
  2. TAXOTERE [Suspect]
     Active Substance: DOCETAXEL
     Dosage: 75 MILLIGRAM/SQ. METER, QWK
     Route: 065
  3. CISPLATIN. [Suspect]
     Active Substance: CISPLATIN
     Indication: METASTATIC GASTRIC CANCER
     Dosage: 75 MILLIGRAM/SQ. METER, QWK
     Route: 042
  4. 5-FLUOROURACIL [Suspect]
     Active Substance: FLUOROURACIL
     Dosage: 2400 MILLIGRAM/SQ. METER CONTINUOUS INFUSION OVER 48
     Route: 042
     Dates: start: 2006
  5. CAMPTO [Suspect]
     Active Substance: IRINOTECAN
     Indication: METASTATIC GASTRIC CANCER
     Dosage: 140 MILLIGRAM/SQ. METER, QWK
     Route: 065
  6. TAXOTERE [Suspect]
     Active Substance: DOCETAXEL
     Indication: METASTATIC GASTRIC CANCER
     Dosage: 85 MILLIGRAM/SQ. METER, QWK
     Route: 042
  7. 5-FLUOROURACIL [Suspect]
     Active Substance: FLUOROURACIL
     Indication: METASTATIC GASTRIC CANCER
     Dosage: 400 MILLIGRAM/SQ. METER, QWK (DAY 1) (1000 MILLIGRAM/SQ.METER PER WEEK)
     Route: 042
  8. 5-FLUOROURACIL [Suspect]
     Active Substance: FLUOROURACIL
     Dosage: 600 MILLIGRAM/SQ. METER, QWK (OVER 22 H ON DAY 1 AND DAY 2) (1000 MILLIGRAM/SQ.METER PER WEEK)
     Route: 042
  9. ELOXATIN [Suspect]
     Active Substance: OXALIPLATIN
     Indication: METASTATIC GASTRIC CANCER
     Dosage: 85 MILLIGRAM/SQ. METER, QWK
     Route: 065
  10. DEXAMETHASONE. [Concomitant]
     Active Substance: DEXAMETHASONE
     Indication: PREMEDICATION
     Dosage: UNK
  11. TAXOTERE [Suspect]
     Active Substance: DOCETAXEL
     Dosage: 70 MILLIGRAM/SQ. METER, QWK
     Route: 065
  12. CISPLATIN. [Suspect]
     Active Substance: CISPLATIN
     Dosage: 60 MILLIGRAM/SQ. METER, QWK
     Route: 065
  13. FOLINIC ACID [Suspect]
     Active Substance: LEUCOVORIN
     Indication: METASTATIC GASTRIC CANCER
     Dosage: 200 MILLIGRAM/SQ. METER, QWK
     Route: 042

REACTIONS (18)
  - Haematotoxicity [Unknown]
  - Neurotoxicity [Unknown]
  - Febrile neutropenia [Fatal]
  - Neutropenia [Unknown]
  - Vomiting [Unknown]
  - Hypocalcaemia [Unknown]
  - Asthenia [Unknown]
  - Thrombocytopenia [Unknown]
  - Blood creatinine increased [Unknown]
  - Intestinal perforation [Fatal]
  - Stomatitis [Unknown]
  - Gastrointestinal toxicity [Unknown]
  - Metastatic gastric cancer [Unknown]
  - Nausea [Unknown]
  - Septic shock [Fatal]
  - Anaemia [Unknown]
  - Diarrhoea [Unknown]
  - Hypokalaemia [Unknown]
